FAERS Safety Report 21594391 (Version 1)
Quarter: 2022Q4

REPORT INFORMATION
  Report Type: Spontaneous
  Country: CN (occurrence: None)
  Receive Date: 20221115
  Receipt Date: 20221115
  Transmission Date: 20230113
  Serious: Yes (Other)
  Sender: FDA-Public Use
  Company Number: CN-ROCHE-3217876

PATIENT
  Age: 72 Year
  Sex: Female
  Weight: 65 kg

DRUGS (4)
  1. GAZYVA [Suspect]
     Active Substance: OBINUTUZUMAB
     Indication: Marginal zone lymphoma stage IV
     Dosage: D0 28 DAYS A CYCLE, TWO CYCLES
     Route: 041
     Dates: start: 20220726
  2. BENDAMUSTINE [Concomitant]
     Active Substance: BENDAMUSTINE
     Dosage: D1, D2 28 DAYS A CYCLE, TWO CYCLES
     Route: 041
     Dates: start: 20220726
  3. ACARBOSE [Concomitant]
     Active Substance: ACARBOSE
     Route: 048
  4. GLIMEPIRIDE [Concomitant]
     Active Substance: GLIMEPIRIDE
     Route: 048

REACTIONS (3)
  - Platelet count decreased [Unknown]
  - Myelosuppression [Unknown]
  - Off label use [Unknown]

NARRATIVE: CASE EVENT DATE: 20220829
